FAERS Safety Report 12800227 (Version 1)
Quarter: 2016Q3

REPORT INFORMATION
  Report Type: Other
  Country: US (occurrence: US)
  Receive Date: 20160930
  Receipt Date: 20160930
  Transmission Date: 20161109
  Serious: Yes (Hospitalization)
  Sender: FDA-Public Use
  Company Number: US-UNITED THERAPEUTICS-UNT-2016-015119

PATIENT
  Age: 51 Year
  Sex: Male
  Weight: 131.52 kg

DRUGS (1)
  1. TYVASO [Suspect]
     Active Substance: TREPROSTINIL
     Indication: PULMONARY HYPERTENSION
     Dosage: 18-72 ?G, QID
     Dates: start: 20151124

REACTIONS (7)
  - Diarrhoea [Unknown]
  - Product use issue [Unknown]
  - Chest discomfort [Unknown]
  - Dehydration [Unknown]
  - Cerebrovascular accident [Unknown]
  - Blood potassium decreased [Unknown]
  - Asthenia [Unknown]

NARRATIVE: CASE EVENT DATE: 20160914
